FAERS Safety Report 8553894 (Version 3)
Quarter: 2012Q4

REPORT INFORMATION
  Report Type: Report from Study
  Country: US (occurrence: US)
  Receive Date: 20120509
  Receipt Date: 20121022
  Transmission Date: 20130627
  Serious: Yes (Death, Hospitalization, Other)
  Sender: FDA-Public Use
  Company Number: US-ROCHE-1066942

PATIENT
  Age: 58 Year
  Sex: Female
  Weight: 69.8 kg

DRUGS (4)
  1. BEVACIZUMAB [Suspect]
     Indication: ENDOMETRIAL CANCER
     Dosage: Over 30-90 mins on day 1x6 cycles (starting cycle 2 if post surgery). Last dose prior to SAE 06/Apr/
     Route: 042
     Dates: start: 20111220
  2. CARBOPLATIN [Suspect]
     Indication: ENDOMETRIAL CANCER
     Dosage: AUC=6 over 30mins on day 1x6 cycles. Last dose prior to SAE 06/Apr/2012.Total dose administered cour
     Route: 042
     Dates: start: 20111220
  3. PACLITAXEL [Suspect]
     Indication: ENDOMETRIAL CANCER
     Dosage: Over 3 hrs on day 1x6 cycles. Last dose prior to SAE 06/Apr/2012. Total dose administered course 244
     Route: 042
     Dates: start: 20111220
  4. DIFLUCAN [Concomitant]

REACTIONS (7)
  - Sepsis [Fatal]
  - Vulvitis [Unknown]
  - Paraesthesia [Recovering/Resolving]
  - Anaemia [Recovering/Resolving]
  - Haematuria [Recovering/Resolving]
  - Platelet count decreased [Recovering/Resolving]
  - Urinary tract infection [Recovering/Resolving]
